FAERS Safety Report 8149129-5 (Version None)
Quarter: 2012Q1

REPORT INFORMATION
  Report Type: 
  Country: None (occurrence: None)
  Receive Date: 20120218
  Receipt Date: 20111012
  Transmission Date: 20120608
  Serious: No
  Sender: FDA-Public Use
  Company Number: US-ALLERGAN-1110149US

PATIENT
  Sex: Female

DRUGS (1)
  1. BOTULINUM TOXIN TYPE A [Suspect]
     Indication: FACIAL SPASM
     Dosage: 20 UNITS, SINGLE
     Route: 030

REACTIONS (3)
  - EYELID PTOSIS [None]
  - VISION BLURRED [None]
  - FACIAL PARESIS [None]
